FAERS Safety Report 8011912-4 (Version None)
Quarter: 2011Q4

REPORT INFORMATION
  Report Type: 
  Country: None (occurrence: None)
  Receive Date: 20111228
  Receipt Date: 20111221
  Transmission Date: 20120403
  Serious: Yes (Hospitalization)
  Sender: FDA-Public Use
  Company Number: US-GLAXOSMITHKLINE-A0891004A

PATIENT
  Age: 58 Year
  Sex: Male
  Weight: 93.6 kg

DRUGS (9)
  1. AMARYL [Concomitant]
  2. INSULIN [Concomitant]
  3. LISINOPRIL [Concomitant]
  4. WELLBUTRIN [Concomitant]
  5. NEURONTIN [Concomitant]
  6. CAPOTEN [Concomitant]
  7. PAXIL [Concomitant]
  8. AVANDIA [Suspect]
     Indication: DIABETES MELLITUS
     Dosage: 4MG TWICE PER DAY
     Route: 048
     Dates: start: 19991001, end: 20050901
  9. ZOCOR [Concomitant]

REACTIONS (8)
  - PALPITATIONS [None]
  - VENTRICULAR EXTRASYSTOLES [None]
  - VENTRICULAR HYPERTROPHY [None]
  - ANGINA PECTORIS [None]
  - CORONARY ARTERY STENOSIS [None]
  - LEFT ATRIAL DILATATION [None]
  - MYOCARDIAL ISCHAEMIA [None]
  - CORONARY ARTERY DISEASE [None]
